FAERS Safety Report 9546499 (Version 1)
Quarter: 2013Q3

REPORT INFORMATION
  Report Type: Spontaneous
  Country: US (occurrence: US)
  Receive Date: 20130923
  Receipt Date: 20130923
  Transmission Date: 20140515
  Serious: No
  Sender: FDA-Public Use
  Company Number: US-ALLERGAN-1114192US

PATIENT
  Age: 74 Year
  Sex: Female
  Weight: 68.03 kg

DRUGS (2)
  1. ACUVAIL [Suspect]
     Indication: MACULAR FIBROSIS
     Dosage: 1 DROP TO LEFT EYE, 3 TIMES A DAY
     Route: 047
     Dates: start: 20110803
  2. ACUVAIL [Suspect]
     Dosage: 1 DROP TO LEFT EYE, 3 TIMES PER DAY
     Route: 047
     Dates: start: 201107, end: 20110803

REACTIONS (1)
  - Eye irritation [Not Recovered/Not Resolved]
